FAERS Safety Report 10027036 (Version 1)
Quarter: 2014Q1

REPORT INFORMATION
  Report Type: Spontaneous
  Country: IN (occurrence: None)
  Receive Date: 20140319
  Receipt Date: 20140319
  Transmission Date: 20141002
  Serious: Yes (Other)
  Sender: FDA-Public Use
  Company Number: FK201400813

PATIENT
  Age: 5 Year
  Sex: Female

DRUGS (1)
  1. VALPROATE [Suspect]
     Indication: INFANTILE SPASMS
     Route: 048

REACTIONS (4)
  - Gingival hyperplasia [None]
  - Anticonvulsant drug level increased [None]
  - Gingival bleeding [None]
  - Dental caries [None]
